FAERS Safety Report 5002798-0 (Version None)
Quarter: 2006Q2

REPORT INFORMATION
  Report Type: 
  Country: None (occurrence: None)
  Receive Date: 20060516
  Receipt Date: 20060411
  Transmission Date: 20061013
  Serious: Yes (Hospitalization, Disabling, Other)
  Sender: FDA-Public Use
  Company Number: PHRM2006FR01343

PATIENT
  Age: 55 Year
  Sex: Male
  Weight: 86 kg

DRUGS (8)
  1. NEORAL [Suspect]
     Indication: NEPHROTIC SYNDROME
     Dosage: 100 MG, BID
     Route: 048
     Dates: start: 20060324
  2. NEORAL [Suspect]
     Dosage: 150 MG BID
     Route: 048
     Dates: start: 20060110
  3. CORTANCYL [Suspect]
     Indication: NEPHROTIC SYNDROME
     Dosage: 80 MG DAILY
     Route: 048
     Dates: start: 20041001
  4. MOPRAL [Concomitant]
  5. IMOVANE [Concomitant]
  6. LEXOMIL [Concomitant]
  7. LASILIX [Concomitant]
  8. CACIT                                   /FRA/ [Concomitant]

REACTIONS (10)
  - BLOOD CREATINE PHOSPHOKINASE INCREASED [None]
  - BLOOD LACTATE DEHYDROGENASE INCREASED [None]
  - CYTOLYTIC HEPATITIS [None]
  - DIABETES MELLITUS INSULIN-DEPENDENT [None]
  - DIABETIC NEUROPATHY [None]
  - HYPOAESTHESIA [None]
  - MUSCLE SPASMS [None]
  - MYALGIA [None]
  - PARAESTHESIA [None]
  - POLYNEUROPATHY [None]
